FAERS Safety Report 9360880 (Version 1)
Quarter: 2013Q2

REPORT INFORMATION
  Report Type: Spontaneous
  Country: FR (occurrence: FR)
  Receive Date: 20130621
  Receipt Date: 20130621
  Transmission Date: 20140414
  Serious: Yes (Life-Threatening, Hospitalization)
  Sender: FDA-Public Use
  Company Number: FR-PFIZER INC-2013183039

PATIENT
  Age: 44 Year
  Sex: Male

DRUGS (1)
  1. XALKORI [Suspect]
     Indication: LUNG NEOPLASM MALIGNANT
     Dosage: 250 MG, 2X/DAY (IN THE MORNING AND IN THE EVENING)
     Route: 048
     Dates: start: 20130220, end: 20130314

REACTIONS (4)
  - Hepatitis [Recovered/Resolved]
  - Hepatitis acute [Recovered/Resolved]
  - Prothrombin time ratio decreased [Recovered/Resolved]
  - Blood alkaline phosphatase increased [Recovered/Resolved]
